FAERS Safety Report 6804631-0 (Version None)
Quarter: 2010Q2

REPORT INFORMATION
  Report Type: 
  Country: None (occurrence: None)
  Receive Date: 20100628
  Receipt Date: 20070417
  Transmission Date: 20101027
  Serious: No
  Sender: FDA-Public Use
  Company Number: US-PFIZER INC-2007031406

PATIENT
  Sex: Male
  Weight: 15 kg

DRUGS (3)
  1. GENOTROPIN [Suspect]
     Indication: GROWTH RETARDATION
     Dates: start: 20070416
  2. MONTELUKAST [Concomitant]
  3. ZYRTEC [Concomitant]

REACTIONS (1)
  - NASAL OEDEMA [None]
